FAERS Safety Report 16840425 (Version 1)
Quarter: 2019Q3

REPORT INFORMATION
  Report Type: Spontaneous
  Country: JP (occurrence: JP)
  Receive Date: 20190923
  Receipt Date: 20190923
  Transmission Date: 20191005
  Serious: Yes (Hospitalization)
  Sender: FDA-Public Use
  Company Number: JP-PFIZER INC-2019361544

PATIENT
  Age: 83 Year
  Sex: Female

DRUGS (12)
  1. AMLODIPINE OD TABLETS [Concomitant]
     Active Substance: AMLODIPINE BESYLATE
     Indication: MYOCARDIAL ISCHAEMIA
     Dosage: 2.5 MG, 1X/DAY
     Route: 048
  2. WARFARIN TABLETS [Concomitant]
     Indication: MYOCARDIAL ISCHAEMIA
     Dosage: 1.5 MG, 1X/DAY
     Route: 048
  3. SENNOSIDE [SENNOSIDE A+B CALCIUM] [Suspect]
     Active Substance: SENNOSIDES A AND B
     Indication: CONSTIPATION
     Dosage: 12 MG, 1X/DAY
     Route: 048
  4. HALFDIGOXIN KY [Concomitant]
     Indication: CARDIAC FAILURE
     Dosage: 0.125 MG, 1X/DAY
     Route: 048
  5. TRAMAL OD TABLETS 25MG [Suspect]
     Active Substance: TRAMADOL HYDROCHLORIDE
     Indication: PAIN
     Dosage: 25 MG, 1X/DAY
     Route: 048
  6. DIART [Concomitant]
     Active Substance: AZOSEMIDE
     Indication: CARDIAC FAILURE
     Dosage: 30 MG, 1X/DAY
     Route: 048
  7. METHYCOBAL [Concomitant]
     Active Substance: METHYLCOBALAMIN
     Indication: NEUROPATHY PERIPHERAL
     Dosage: 500 UG, 2X/DAY
     Route: 048
  8. LIMAPROST [Concomitant]
     Active Substance: LIMAPROST
     Indication: NEUROPATHY PERIPHERAL
     Dosage: 5 UG, 3X/DAY
     Route: 048
  9. LYRICA [Suspect]
     Active Substance: PREGABALIN
     Indication: NEUROPATHY PERIPHERAL
     Dosage: 75 MG, 2X/DAY
     Route: 048
  10. TRAMCET COMBINATION TABLETS [Concomitant]
     Indication: PAIN
     Dosage: 1 DF, 1X/DAY
     Route: 048
  11. MAGMITT [Concomitant]
     Active Substance: MAGNESIUM OXIDE
     Indication: CONSTIPATION
     Dosage: 330 MG, 2X/DAY
     Route: 048
  12. EPERISONE HYDROCHLORIDE [Concomitant]
     Active Substance: EPERISONE HYDROCHLORIDE
     Indication: NEUROPATHY PERIPHERAL
     Dosage: 50 MG, 2X/DAY
     Route: 048

REACTIONS (3)
  - Spinal compression fracture [Unknown]
  - Thirst [Not Recovered/Not Resolved]
  - Saliva discolouration [Unknown]

NARRATIVE: CASE EVENT DATE: 20190821
